FAERS Safety Report 21380083 (Version 1)
Quarter: 2022Q3

REPORT INFORMATION
  Report Type: Spontaneous
  Country: US (occurrence: None)
  Receive Date: 20220923
  Receipt Date: 20220923
  Transmission Date: 20221027
  Serious: Yes (Hospitalization)
  Sender: FDA-Public Use
  Company Number: None

PATIENT
  Age: 72 Year
  Sex: Male

DRUGS (1)
  1. RISPERIDONE [Suspect]
     Active Substance: RISPERIDONE
     Indication: Affective disorder
     Dosage: 1/2 TAB BID PO
     Route: 048
     Dates: start: 20220224, end: 20220407

REACTIONS (4)
  - Sedation complication [None]
  - Anxiety [None]
  - Disturbance in attention [None]
  - Tardive dyskinesia [None]

NARRATIVE: CASE EVENT DATE: 20220725
